FAERS Safety Report 9875807 (Version 2)
Quarter: 2014Q1

REPORT INFORMATION
  Report Type: Spontaneous
  Country: CH (occurrence: None)
  Receive Date: 20140204
  Receipt Date: 20140224
  Transmission Date: 20141002
  Serious: Yes (Other)
  Sender: FDA-Public Use
  Company Number: 20140028

PATIENT
  Age: 24 Year
  Sex: Female

DRUGS (1)
  1. FERINJECT [Suspect]
     Indication: IRON DEFICIENCY
     Dosage: 500MG 11 TOTAL
     Dates: start: 201109, end: 201112

REACTIONS (3)
  - Cystic fibrosis [None]
  - Condition aggravated [None]
  - Respiratory disorder [None]
